FAERS Safety Report 12457891 (Version 7)
Quarter: 2016Q3

REPORT INFORMATION
  Report Type: Report from Study
  Country: DE (occurrence: DE)
  Receive Date: 20160612
  Receipt Date: 20160916
  Transmission Date: 20161109
  Serious: Yes (Hospitalization)
  Sender: FDA-Public Use
  Company Number: PHHO2016DE000548

PATIENT
  Age: 16 Year
  Sex: Male
  Weight: 48 kg

DRUGS (6)
  1. EVEROLIMUS [Suspect]
     Active Substance: EVEROLIMUS
     Indication: RENAL TRANSPLANT
     Dosage: 0.8 MG, BID
     Route: 048
     Dates: start: 20150803
  2. NEORAL [Suspect]
     Active Substance: CYCLOSPORINE
     Indication: RENAL TRANSPLANT
     Dosage: 80 MG, BID
     Route: 048
     Dates: start: 20150710, end: 20160708
  3. PREDNISOLONE. [Concomitant]
     Active Substance: PREDNISOLONE
     Indication: RENAL TRANSPLANT
     Dosage: 5 MG, QD
     Route: 048
     Dates: start: 20150710
  4. PREDNISOLONE. [Concomitant]
     Active Substance: PREDNISOLONE
     Dosage: 500 MG/M2, UNK
     Route: 042
     Dates: start: 20160104, end: 20160109
  5. EVEROLIMUS [Suspect]
     Active Substance: EVEROLIMUS
     Dosage: 1.5 MG, BID
     Route: 048
     Dates: start: 20160708
  6. PREDNISOLONE. [Concomitant]
     Active Substance: PREDNISOLONE
     Dosage: 450 MG, UNK
     Route: 065
     Dates: start: 20160708

REACTIONS (3)
  - Blood creatine increased [Recovering/Resolving]
  - Kidney transplant rejection [Recovering/Resolving]
  - Dehydration [Recovered/Resolved]

NARRATIVE: CASE EVENT DATE: 20160104
